FAERS Safety Report 9059702 (Version 1)
Quarter: 2013Q1

REPORT INFORMATION
  Report Type: Spontaneous
  Country: US (occurrence: None)
  Receive Date: 20130206
  Receipt Date: 20130206
  Transmission Date: 20140127
  Serious: Yes (Hospitalization)
  Sender: FDA-Public Use
  Company Number: None

PATIENT
  Age: 54 Year
  Sex: Male
  Weight: 78 kg

DRUGS (1)
  1. LAMOTRIGINE [Suspect]
     Indication: CONVULSION
     Dosage: 200 MG  BID  PO
     Route: 048
     Dates: start: 20120118, end: 20121221

REACTIONS (4)
  - Dizziness [None]
  - Gait disturbance [None]
  - Convulsion [None]
  - Toxicity to various agents [None]
